FAERS Safety Report 6656762-6 (Version None)
Quarter: 2010Q1

REPORT INFORMATION
  Report Type: 
  Country: None (occurrence: None)
  Receive Date: 20100316
  Receipt Date: 20100303
  Transmission Date: 20100710
  Serious: Yes (Other)
  Sender: FDA-Public Use
  Company Number: GAM-021-10-US

PATIENT
  Age: 35 Year
  Sex: Female

DRUGS (2)
  1. OCTAGAM [Suspect]
     Indication: MULTIPLE SCLEROSIS
     Dosage: 40 GM IV EVERY 2 WEEKS
     Route: 042
     Dates: start: 20100106
  2. OCTAGAM [Suspect]

REACTIONS (1)
  - HEPATITIS B [None]
